FAERS Safety Report 5447500-3 (Version None)
Quarter: 2007Q3

REPORT INFORMATION
  Report Type: 
  Country: None (occurrence: None)
  Receive Date: 20070910
  Receipt Date: 20070831
  Transmission Date: 20080115
  Serious: Yes (Other)
  Sender: FDA-Public Use
  Company Number: B0481516A

PATIENT
  Sex: Male

DRUGS (12)
  1. ADARTREL [Suspect]
     Indication: RESTLESS LEGS SYNDROME
     Dosage: 2MG PER DAY
     Route: 048
     Dates: start: 20070101
  2. CORDARONE [Concomitant]
     Dosage: 200MG PER DAY
  3. DIOVAN HCT [Concomitant]
  4. DILATREND [Concomitant]
  5. ASPIRIN [Concomitant]
  6. PRAVASTATIN [Concomitant]
  7. SUPRADYN [Concomitant]
  8. FOLVITE [Concomitant]
  9. VIT B12 [Concomitant]
  10. MAGNESIOCARD [Concomitant]
  11. SINTROM [Concomitant]
  12. SIFROL [Concomitant]
     Indication: RESTLESS LEGS SYNDROME
     Route: 065

REACTIONS (4)
  - DRUG DISPENSING ERROR [None]
  - PHARMACEUTICAL PRODUCT COMPLAINT [None]
  - SLEEP ATTACKS [None]
  - SOMNOLENCE [None]
